FAERS Safety Report 7280310-3 (Version None)
Quarter: 2011Q1

REPORT INFORMATION
  Report Type: 
  Country: None (occurrence: None)
  Receive Date: 20110208
  Receipt Date: 20110204
  Transmission Date: 20110831
  Serious: Yes (Death)
  Sender: FDA-Public Use
  Company Number: US-SANOFI-AVENTIS-2011SA007649

PATIENT
  Age: 69 Year
  Sex: Female

DRUGS (5)
  1. ENALAPRIL MALEATE [Concomitant]
  2. MULTAQ [Suspect]
     Indication: ATRIAL FIBRILLATION
     Route: 048
     Dates: start: 20100217, end: 20110107
  3. WARFARIN [Concomitant]
  4. TOPROL-XL [Concomitant]
  5. BUMEX [Concomitant]

REACTIONS (1)
  - CARDIAC ARREST [None]
